FAERS Safety Report 4477439-1 (Version None)
Quarter: 2004Q4

REPORT INFORMATION
  Report Type: 
  Country: None (occurrence: None)
  Receive Date: 20041005
  Receipt Date: 20040920
  Transmission Date: 20050328
  Serious: Yes (Hospitalization)
  Sender: FDA-Public Use
  Company Number: IGH/04/09/UNK

PATIENT
  Age: 83 Year
  Sex: Male
  Weight: 62.5 kg

DRUGS (6)
  1. IMMUNE GLOBULIN INTRAVENOUS (HUMAN) (IMMUNOGLOBULIN HUMAN NORMAL) [Suspect]
     Indication: HYPOGAMMAGLOBULINAEMIA
     Dosage: 20 G, MONTHLY, I.V.
     Route: 042
     Dates: start: 20040414, end: 20040512
  2. IMMUNE GLOBULIN INTRAVENOUS (HUMAN) [Suspect]
     Indication: HYPOGAMMAGLOBULINAEMIA
     Dosage: 20 G, MONTHLY, I.V.
     Route: 042
     Dates: start: 20040609, end: 20040609
  3. VIGAM (IMMUNOGLOBULIN HUMAN NORMAL) [Suspect]
     Indication: HYPOGAMMAGLOBULINAEMIA
     Dosage: 20 G, MONTHLY, I.V.
     Route: 042
     Dates: start: 20040708, end: 20040708
  4. PREDNISOLONE [Concomitant]
  5. FOLIC ACID [Concomitant]
  6. RISEDRONATE SODIUM [Concomitant]

REACTIONS (1)
  - DERMATITIS EXFOLIATIVE [None]
